FAERS Safety Report 8165358-9 (Version None)
Quarter: 2012Q1

REPORT INFORMATION
  Report Type: 
  Country: None (occurrence: None)
  Receive Date: 20120227
  Receipt Date: 20110609
  Transmission Date: 20120608
  Serious: No
  Sender: FDA-Public Use
  Company Number: US-MYLANLABS-2011S1011890

PATIENT
  Age: 45 Year
  Sex: Female
  Weight: 63.5 kg

DRUGS (3)
  1. LANTUS [Concomitant]
     Indication: DIABETES MELLITUS
     Route: 058
     Dates: start: 20110101
  2. APIDRA [Concomitant]
     Indication: DIABETES MELLITUS
     Route: 058
     Dates: start: 20110101
  3. METFORMIN HCL [Suspect]
     Indication: DIABETES MELLITUS
     Route: 048
     Dates: start: 20110514, end: 20110501

REACTIONS (1)
  - WEIGHT INCREASED [None]
